FAERS Safety Report 17655299 (Version 5)
Quarter: 2021Q4

REPORT INFORMATION
  Report Type: Other
  Country: CA (occurrence: CA)
  Receive Date: 20200410
  Receipt Date: 20211023
  Transmission Date: 20220304
  Serious: Yes (Life-Threatening, Other)
  Sender: FDA-Public Use
  Company Number: CA-002147023-PHHY2019CA109976

PATIENT
  Age: 37 Year
  Sex: Female

DRUGS (7)
  1. XOLAIR [Suspect]
     Active Substance: OMALIZUMAB
     Indication: Chronic spontaneous urticaria
     Route: 058
     Dates: start: 20190509
  2. XOLAIR [Suspect]
     Active Substance: OMALIZUMAB
     Route: 058
     Dates: start: 20191217
  3. XOLAIR [Suspect]
     Active Substance: OMALIZUMAB
     Route: 058
     Dates: start: 20210429
  4. XOLAIR [Suspect]
     Active Substance: OMALIZUMAB
     Route: 058
     Dates: start: 20190510
  5. CETIRIZINE [Suspect]
     Active Substance: CETIRIZINE HYDROCHLORIDE
     Indication: Product used for unknown indication
     Route: 065
  6. CETIRIZINE HYDROCHLORIDE [Concomitant]
     Active Substance: CETIRIZINE HYDROCHLORIDE
     Indication: Product used for unknown indication
     Route: 048
     Dates: start: 2018
  7. RUPATADINE FUMARATE [Concomitant]
     Active Substance: RUPATADINE FUMARATE
     Indication: Product used for unknown indication
     Route: 048
     Dates: start: 2018

REACTIONS (17)
  - Urticaria [Recovered/Resolved]
  - Muscle spasms [Recovering/Resolving]
  - Facial spasm [Recovering/Resolving]
  - Feeling abnormal [Recovering/Resolving]
  - Muscle tightness [Recovering/Resolving]
  - Feeling hot [Recovering/Resolving]
  - Paraesthesia [Recovering/Resolving]
  - Limb discomfort [Unknown]
  - Product dose omission issue [Unknown]
  - Product availability issue [Unknown]
  - Drug ineffective [Unknown]
  - Pruritus [Unknown]
  - Pharyngitis streptococcal [Unknown]
  - Stress [Unknown]
  - Sleep disorder [Unknown]
  - Eczema [Unknown]
  - Histamine level increased [Unknown]

NARRATIVE: CASE EVENT DATE: 20190509
